FAERS Safety Report 10922792 (Version 1)
Quarter: 2015Q1

REPORT INFORMATION
  Report Type: Spontaneous
  Country: JP (occurrence: JP)
  Receive Date: 20150317
  Receipt Date: 20150317
  Transmission Date: 20150721
  Serious: Yes (Other)
  Sender: FDA-Public Use
  Company Number: JP-GLAXOSMITHKLINE INC.-JP2015JPN033090

PATIENT
  Sex: Male

DRUGS (2)
  1. AVOLVE [Suspect]
     Active Substance: DUTASTERIDE
     Dosage: UNK
     Route: 048
  2. WARFARIN K [Concomitant]
     Active Substance: WARFARIN POTASSIUM
     Dosage: UNK

REACTIONS (1)
  - Electrocardiogram QT prolonged [Unknown]
